FAERS Safety Report 22526817 (Version 1)
Quarter: 2023Q2

REPORT INFORMATION
  Report Type: Spontaneous
  Country: SE (occurrence: SE)
  Receive Date: 20230606
  Receipt Date: 20230606
  Transmission Date: 20230721
  Serious: Yes (Life-Threatening)
  Sender: FDA-Public Use
  Company Number: None

PATIENT
  Age: 29 Year
  Sex: Male

DRUGS (2)
  1. DESLORATADINE [Suspect]
     Active Substance: DESLORATADINE
     Indication: Seasonal allergy
     Dosage: 5 MG, QD (1X1)
     Route: 048
     Dates: start: 20230501, end: 20230523
  2. DESLORATADINE [Suspect]
     Active Substance: DESLORATADINE
     Indication: Rhinorrhoea

REACTIONS (2)
  - Cardiac arrest [Recovering/Resolving]
  - Electrocardiogram QT prolonged [Recovering/Resolving]

NARRATIVE: CASE EVENT DATE: 20230520
